FAERS Safety Report 20567374 (Version 2)
Quarter: 2022Q1

REPORT INFORMATION
  Report Type: Report from Study
  Country: US (occurrence: US)
  Receive Date: 20220308
  Receipt Date: 20220318
  Transmission Date: 20220423
  Serious: Yes (Death, Hospitalization)
  Sender: FDA-Public Use
  Company Number: US-NOVARTISPH-NVSC2022US054223

PATIENT
  Age: 58 Year
  Sex: Female

DRUGS (2)
  1. JADENU [Suspect]
     Active Substance: DEFERASIROX
     Indication: Product used for unknown indication
     Dosage: 360 MG
     Route: 065
     Dates: start: 20200728, end: 20220208
  2. PROMACTA [Suspect]
     Active Substance: ELTROMBOPAG OLAMINE
     Indication: Product used for unknown indication
     Dosage: 150 MG
     Route: 065
     Dates: start: 20190813, end: 20210526

REACTIONS (4)
  - Death [Fatal]
  - Abdominal pain [Unknown]
  - Asthenia [Unknown]
  - Cachexia [Unknown]

NARRATIVE: CASE EVENT DATE: 20220301
